FAERS Safety Report 10437912 (Version 1)
Quarter: 2014Q3

REPORT INFORMATION
  Report Type: Spontaneous
  Country: US (occurrence: US)
  Receive Date: 20140908
  Receipt Date: 20140908
  Transmission Date: 20150326
  Serious: No
  Sender: FDA-Public Use
  Company Number: US-BRISTOL-MYERS SQUIBB COMPANY-21067061

PATIENT
  Age: 23 Year
  Sex: Male

DRUGS (2)
  1. ABILIFY [Suspect]
     Active Substance: ARIPIPRAZOLE
  2. LAMOTRIGIN [Concomitant]
     Active Substance: LAMOTRIGINE

REACTIONS (3)
  - Depression [Unknown]
  - Eating disorder [Unknown]
  - Weight increased [Unknown]
